FAERS Safety Report 20430445 (Version 1)
Quarter: 2022Q1

REPORT INFORMATION
  Report Type: Report from Study
  Country: FR (occurrence: FR)
  Receive Date: 20220204
  Receipt Date: 20220204
  Transmission Date: 20220423
  Serious: Yes (Death, Hospitalization, Other)
  Sender: FDA-Public Use
  Company Number: FR-SERVIER-S20007984

PATIENT

DRUGS (12)
  1. PEGASPARGASE [Suspect]
     Active Substance: PEGASPARGASE
     Indication: Acute lymphocytic leukaemia
     Dosage: 4900 IU, ON D12
     Route: 042
     Dates: start: 20200713, end: 20200713
  2. PREDNISOLONE ACETATE [Suspect]
     Active Substance: PREDNISOLONE ACETATE
     Indication: Acute lymphocytic leukaemia
     Dosage: 120 MG FROM D8 TO D28
     Route: 048
     Dates: start: 20200709, end: 20200729
  3. AMPHOTERICIN B [Suspect]
     Active Substance: AMPHOTERICIN B
     Indication: Acute lymphocytic leukaemia
     Dosage: UNK
  4. CILASTATIN SODIUM\IMIPENEM [Suspect]
     Active Substance: CILASTATIN SODIUM\IMIPENEM
     Indication: Acute lymphocytic leukaemia
     Dosage: UNK
  5. BACTRIM [Suspect]
     Active Substance: SULFAMETHOXAZOLE\TRIMETHOPRIM
     Indication: Acute lymphocytic leukaemia
     Dosage: UNK
  6. TN UNSPECIFIED [Concomitant]
     Indication: Acute lymphocytic leukaemia
     Dosage: 120 MG FROM D1 TO D7
     Route: 042
     Dates: start: 20200702, end: 20200708
  7. TN UNSPECIFIED [Concomitant]
     Indication: Acute lymphocytic leukaemia
     Dosage: 1960 MG ON D9
     Route: 042
     Dates: start: 20200710, end: 20200710
  8. TN UNSPECIFIED [Concomitant]
     Indication: Acute lymphocytic leukaemia
     Dosage: 2.0 MG ON D8, D15, D22, D29
     Route: 042
     Dates: start: 20200709, end: 20200730
  9. TN UNSPECIFIED [Concomitant]
     Indication: Acute lymphocytic leukaemia
     Dosage: 15 MG ON D1, D4, D9, D13, D24
     Route: 037
     Dates: start: 20200704, end: 20200727
  10. TN UNSPECIFIED [Concomitant]
     Indication: Acute lymphocytic leukaemia
     Dosage: 30 MG ON D4, D9, D13, D24
     Route: 037
     Dates: start: 20200710, end: 20200727
  11. TN UNSPECIFIED [Concomitant]
     Indication: Acute lymphocytic leukaemia
     Dosage: 15 MG ON D4, D9, D13, D24
     Route: 037
     Dates: start: 20200710, end: 20200727
  12. TN UNSEPCIFIED [Concomitant]
     Indication: Acute lymphocytic leukaemia
     Dosage: 78 MG, D8, D15, D22, D29
     Route: 042
     Dates: start: 20200709, end: 20200730

REACTIONS (4)
  - Sepsis [Fatal]
  - Drug-induced liver injury [Fatal]
  - Hypofibrinogenaemia [Recovered/Resolved]
  - Hepatic cytolysis [Not Recovered/Not Resolved]

NARRATIVE: CASE EVENT DATE: 20200718
